FAERS Safety Report 5820932-7 (Version None)
Quarter: 2008Q3

REPORT INFORMATION
  Report Type: 
  Country: None (occurrence: None)
  Receive Date: 20080724
  Receipt Date: 20080219
  Transmission Date: 20090109
  Serious: No
  Sender: FDA-Public Use
  Company Number: US-BAYER-200810791BCC

PATIENT
  Age: 82 Year
  Sex: Female
  Weight: 52 kg

DRUGS (8)
  1. ALEVE [Suspect]
     Indication: ARTHRITIS
     Dosage: AS USED: 440 MG  UNIT DOSE: 220 MG
     Route: 048
  2. LIPITOR [Concomitant]
  3. ASCORBIC ACID [Concomitant]
  4. VITAMIN E [Concomitant]
  5. MULTI-VITAMIN [Concomitant]
  6. ATENOLOL [Concomitant]
  7. CALCIUM W/ VITAMIN D [Concomitant]
  8. ASPIRIN [Concomitant]

REACTIONS (2)
  - DISCOMFORT [None]
  - FEELING ABNORMAL [None]
